FAERS Safety Report 10582428 (Version 1)
Quarter: 2014Q4

REPORT INFORMATION
  Report Type: Spontaneous
  Country: CH (occurrence: CH)
  Receive Date: 20141113
  Receipt Date: 20141113
  Transmission Date: 20150529
  Serious: Yes (Other)
  Sender: FDA-Public Use
  Company Number: CH-INCYTE CORPORATION-2014IN003372

PATIENT
  Age: 73 Year
  Sex: Female

DRUGS (3)
  1. JAKAFI [Suspect]
     Active Substance: RUXOLITINIB
     Indication: MYELOFIBROSIS
     Dosage: 4 DF, TWICE PER DAY
     Route: 065
     Dates: start: 20121114
  2. JAKAFI [Suspect]
     Active Substance: RUXOLITINIB
     Dosage: 5 MG,  TWICE PER DAY
     Route: 065
     Dates: start: 20130320, end: 20130702
  3. JAKAFI [Suspect]
     Active Substance: RUXOLITINIB
     Dosage: 5 MG, TWICE PER DAY
     Route: 065
     Dates: start: 20121204, end: 20121214

REACTIONS (5)
  - Lymphocytosis [Unknown]
  - Splenomegaly [Unknown]
  - Thrombocytopenia [Unknown]
  - Diarrhoea [Unknown]
  - Anaemia [Unknown]

NARRATIVE: CASE EVENT DATE: 20121214
